FAERS Safety Report 13108660 (Version 1)
Quarter: 2017Q1

REPORT INFORMATION
  Report Type: Spontaneous
  Country: US (occurrence: US)
  Receive Date: 20170111
  Receipt Date: 20170111
  Transmission Date: 20170428
  Serious: No
  Sender: FDA-Public Use
  Company Number: None

PATIENT
  Age: 48 Year
  Sex: Male
  Weight: 99 kg

DRUGS (1)
  1. BELSOMRA [Suspect]
     Active Substance: SUVOREXANT
     Indication: INSOMNIA
     Dosage: QUANTITY:1 TABLET(S);?
     Route: 048
     Dates: start: 20150611, end: 20150613

REACTIONS (2)
  - Nervousness [None]
  - Insomnia [None]

NARRATIVE: CASE EVENT DATE: 20150611
